FAERS Safety Report 7628921-7 (Version None)
Quarter: 2011Q3

REPORT INFORMATION
  Report Type: 
  Country: None (occurrence: None)
  Receive Date: 20110722
  Receipt Date: 20110719
  Transmission Date: 20111222
  Serious: Yes (Hospitalization, Other)
  Sender: FDA-Public Use
  Company Number: BR-PFIZER INC-2011164295

PATIENT
  Age: 54 Year
  Sex: Female
  Weight: 45 kg

DRUGS (9)
  1. AMPLICTIL [Concomitant]
     Indication: DEPRESSION
     Dosage: UNK
  2. MELOXICAM [Concomitant]
     Indication: FIBROMYALGIA
     Dosage: UNK
     Dates: start: 20090101
  3. PAMELOR [Concomitant]
     Indication: DEPRESSION
     Dosage: UNK
  4. PREDNISONE [Concomitant]
     Indication: EMPHYSEMA
     Dosage: UNK,TAKEN WHEN SHE WAS ON CRISIS
  5. VENLAFAXINE [Concomitant]
     Indication: DEPRESSION
     Dosage: UNK
  6. ZOLPIDEM [Concomitant]
     Indication: DEPRESSION
     Dosage: UNK
  7. ALENIA [Concomitant]
     Indication: EMPHYSEMA
     Dosage: DAILY
     Dates: start: 20100101
  8. RISPERIDONE [Concomitant]
     Indication: DEPRESSION
     Dosage: UNK
  9. VARENICLINE TARTRATE [Suspect]
     Indication: SMOKING CESSATION THERAPY
     Dosage: UNK
     Route: 048
     Dates: start: 20110101

REACTIONS (2)
  - MAJOR DEPRESSION [None]
  - LETHARGY [None]
